FAERS Safety Report 9311433 (Version 4)
Quarter: 2013Q3

REPORT INFORMATION
  Report Type: Spontaneous
  Country: US (occurrence: None)
  Receive Date: 20130308
  Receipt Date: 20130815
  Transmission Date: 20140515
  Serious: Yes (Hospitalization, Other)
  Sender: FDA-Public Use
  Company Number: ADR-2013-00246

PATIENT
  Age: 50 Year
  Sex: Female

DRUGS (3)
  1. BACLOFEN [Suspect]
     Indication: PAIN
  2. MORPHINE [Concomitant]
  3. BUPIVACAINE [Concomitant]

REACTIONS (18)
  - Abasia [None]
  - Pain in extremity [None]
  - Device dislocation [None]
  - Cerebrospinal fluid leakage [None]
  - Implant site extravasation [None]
  - Surgical procedure repeated [None]
  - Dural tear [None]
  - Treatment noncompliance [None]
  - Device related infection [None]
  - Device occlusion [None]
  - Device damage [None]
  - Foreign body [None]
  - Intracranial hypotension [None]
  - Pain in extremity [None]
  - Sensory loss [None]
  - Multiple sclerosis [None]
  - Implant site extravasation [None]
  - Infection [None]
